FAERS Safety Report 24053315 (Version 1)
Quarter: 2024Q3

REPORT INFORMATION
  Report Type: Other
  Country: IT (occurrence: None)
  Receive Date: 20240705
  Receipt Date: 20240705
  Transmission Date: 20241016
  Serious: Yes (Other)
  Sender: ISTITUTO BICHIMICO ITALIANO GIOVANNI LORENZINI (IBIGEN)
  Company Number: None

PATIENT
  Age: 75 Year
  Sex: Male
  Weight: 95 kg

DRUGS (18)
  1. FENTANYL [Concomitant]
     Active Substance: FENTANYL\FENTANYL CITRATE
  2. ZOLPIDEM [Concomitant]
     Active Substance: ZOLPIDEM TARTRATE
  3. ALBUTEROL [Concomitant]
     Active Substance: ALBUTEROL
  4. PIPERACILLIN SODIUM\TAZOBACTAM SODIUM [Suspect]
     Active Substance: PIPERACILLIN SODIUM\TAZOBACTAM SODIUM
     Indication: Bacterial infection
     Dosage: PIPERACILLINA-TAZOBACTAM 4.5 GRAMMI OGNI 6 ORE ()
     Route: 042
     Dates: start: 20240530, end: 20240618
  5. LANSOPRAZOLE [Concomitant]
     Active Substance: LANSOPRAZOLE
  6. LEVOTHYROXINE [Concomitant]
     Active Substance: LEVOTHYROXINE\LEVOTHYROXINE SODIUM
  7. QUETIAPINE [Concomitant]
     Active Substance: QUETIAPINE
  8. ENOXAPARIN [Concomitant]
     Active Substance: ENOXAPARIN
  9. IPRATROPIUM BROMIDE [Concomitant]
     Active Substance: IPRATROPIUM BROMIDE\IPRATROPIUM BROMIDE ANHYDROUS
  10. ACETYLCYSTEINE [Concomitant]
     Active Substance: ACETYLCYSTEINE
  11. TAMOXIFEN [Concomitant]
     Active Substance: TAMOXIFEN
  12. CHOLECALCIFEROL [Concomitant]
     Active Substance: CHOLECALCIFEROL
  13. FUROSEMIDE [Concomitant]
     Active Substance: FUROSEMIDE
  14. FLUGENIX [Concomitant]
  15. RAMIPRIL [Concomitant]
     Active Substance: RAMIPRIL
  16. BISOPROLOL FUMARATE [Concomitant]
     Active Substance: BISOPROLOL FUMARATE
  17. ALLOPURINOL [Concomitant]
     Active Substance: ALLOPURINOL
  18. PREDNISONE [Concomitant]
     Active Substance: PREDNISONE

REACTIONS (1)
  - Myelosuppression [Recovered/Resolved]

NARRATIVE: CASE EVENT DATE: 20240614
